FAERS Safety Report 15557019 (Version 1)
Quarter: 2018Q4

REPORT INFORMATION
  Report Type: Spontaneous
  Country: PL (occurrence: PL)
  Receive Date: 20181026
  Receipt Date: 20181026
  Transmission Date: 20190205
  Serious: Yes (Death, Hospitalization)
  Sender: FDA-Public Use
  Company Number: PL-MYLANLABS-2018M1078487

PATIENT
  Age: 69 Year
  Sex: Male

DRUGS (4)
  1. CISPLATIN. [Concomitant]
     Active Substance: CISPLATIN
     Indication: METASTASES TO LYMPH NODES
  2. VINORELBINE [Suspect]
     Active Substance: VINORELBINE\VINORELBINE TARTRATE
     Indication: METASTASES TO LYMPH NODES
  3. CISPLATIN. [Concomitant]
     Active Substance: CISPLATIN
     Indication: NON-SMALL CELL LUNG CANCER STAGE IIIB
     Dosage: HOSPITALISED TO RECEIVE THE FOURTH CYCLE OF CISPLATIN 3X50MG
     Route: 065
  4. VINORELBINE [Suspect]
     Active Substance: VINORELBINE\VINORELBINE TARTRATE
     Indication: NON-SMALL CELL LUNG CANCER STAGE IIIB
     Dosage: HOSPITALISED TO RECEIVE THE FOURTH CYCLE OF IV VINORELBINE 50MG; OWING TO A MISTAKE, THE PATIENT ...
     Route: 042

REACTIONS (20)
  - Thrombocytopenia [Not Recovered/Not Resolved]
  - Bone marrow toxicity [Fatal]
  - Ecchymosis [Not Recovered/Not Resolved]
  - Asthenia [Not Recovered/Not Resolved]
  - Malaise [Not Recovered/Not Resolved]
  - Abdominal pain [Recovered/Resolved]
  - Flatulence [Recovered/Resolved]
  - Constipation [Recovered/Resolved]
  - Accidental overdose [Fatal]
  - Arthralgia [Not Recovered/Not Resolved]
  - Abdominal distension [Recovered/Resolved]
  - Ileus paralytic [Recovered/Resolved]
  - Anaemia [Not Recovered/Not Resolved]
  - Somnolence [Not Recovered/Not Resolved]
  - Myalgia [Not Recovered/Not Resolved]
  - Toxicity to various agents [Fatal]
  - Bone marrow failure [Fatal]
  - Neutropenia [Not Recovered/Not Resolved]
  - Incorrect dose administered [Fatal]
  - Skin discolouration [Not Recovered/Not Resolved]
